FAERS Safety Report 10522072 (Version 2)
Quarter: 2014Q4

REPORT INFORMATION
  Report Type: Spontaneous
  Country: US (occurrence: None)
  Receive Date: 20141014
  Receipt Date: 20141219
  Transmission Date: 20150528
  Serious: Yes (Other)
  Sender: FDA-Public Use
  Company Number: 2014-US-012440

PATIENT
  Age: 23 Year
  Sex: Female

DRUGS (2)
  1. XYREM [Suspect]
     Active Substance: SODIUM OXYBATE
     Indication: NARCOLEPSY
     Dosage: DOSE ADJUSTMENTS, ORAL
     Route: 048
     Dates: start: 201110, end: 2011
  2. XYREM [Suspect]
     Active Substance: SODIUM OXYBATE
     Indication: CATAPLEXY
     Dosage: DOSE ADJUSTMENTS, ORAL
     Route: 048
     Dates: start: 201110, end: 2011

REACTIONS (3)
  - Arthralgia [None]
  - Connective tissue disorder [None]
  - Sleep disorder [None]

NARRATIVE: CASE EVENT DATE: 201409
